FAERS Safety Report 8447989-1 (Version None)
Quarter: 2012Q2

REPORT INFORMATION
  Report Type: 
  Country: None (occurrence: None)
  Receive Date: 20120619
  Receipt Date: 20120612
  Transmission Date: 20120825
  Serious: Yes (Hospitalization)
  Sender: FDA-Public Use
  Company Number: IT-UCBSA-057787

PATIENT
  Age: 18 Year
  Sex: Female

DRUGS (3)
  1. VIMPAT [Suspect]
     Indication: EPILEPSY
     Dosage: DAILY DOSE: 50 MG,
     Route: 048
     Dates: start: 20120512, end: 20120513
  2. LAMICTAL [Suspect]
     Indication: EPILEPSY
     Dosage: DAILY DOSE: 200 MG, 56 DISPERSIBLE/CHEWABLE TABLET
     Route: 048
     Dates: start: 20120313, end: 20120516
  3. CLONAZEPAM [Concomitant]
     Indication: EPILEPSY
     Dosage: 2 MG, 20 TABLETS, DAILY DOSE: 4 MG
     Route: 048
     Dates: start: 20120313, end: 20120521

REACTIONS (1)
  - STEVENS-JOHNSON SYNDROME [None]
